FAERS Safety Report 8806552 (Version 1)
Quarter: 2012Q4

REPORT INFORMATION
  Report Type: Report from Study
  Country: US (occurrence: US)
  Receive Date: 20120925
  Receipt Date: 20120925
  Transmission Date: 20130627
  Serious: Yes (Other)
  Sender: FDA-Public Use
  Company Number: US-JNJFOC-20120907591

PATIENT
  Age: 31 None
  Sex: Female
  Weight: 99.79 kg

DRUGS (6)
  1. REMICADE [Suspect]
     Indication: CROHN^S DISEASE
     Route: 042
     Dates: start: 20120703, end: 201207
  2. BENADRYL [Concomitant]
     Indication: PREMEDICATION
  3. ANTIHISTAMINES [Concomitant]
     Indication: PREMEDICATION
  4. IMURAN [Concomitant]
     Indication: CROHN^S DISEASE
     Route: 048
  5. WELLBUTRIN [Concomitant]
     Indication: DEPRESSION
     Route: 048
     Dates: start: 201204
  6. CONTRACEPTIVE [Concomitant]
     Indication: CONTRACEPTION

REACTIONS (6)
  - Chest discomfort [Recovered/Resolved]
  - Dyspnoea [Recovered/Resolved]
  - Trismus [Recovered/Resolved]
  - Urticaria [Recovered/Resolved]
  - Hyperhidrosis [Recovered/Resolved]
  - Infusion related reaction [Recovered/Resolved]
